FAERS Safety Report 23443620 (Version 2)
Quarter: 2024Q2

REPORT INFORMATION
  Report Type: Spontaneous
  Country: US (occurrence: US)
  Receive Date: 20240125
  Receipt Date: 20240405
  Transmission Date: 20240716
  Serious: No
  Sender: FDA-Public Use
  Company Number: US-PFIZER INC-202300012501

PATIENT
  Age: 72 Year
  Sex: Female
  Weight: 56.689 kg

DRUGS (1)
  1. LORBRENA [Suspect]
     Active Substance: LORLATINIB
     Indication: Lung neoplasm malignant
     Dosage: 100 MG, 1X/DAY
     Route: 048
     Dates: start: 202101

REACTIONS (3)
  - Cerebral disorder [Not Recovered/Not Resolved]
  - Memory impairment [Unknown]
  - Peripheral swelling [Unknown]
